FAERS Safety Report 6217818-5 (Version None)
Quarter: 2009Q2

REPORT INFORMATION
  Report Type: 
  Country: None (occurrence: None)
  Receive Date: 20090608
  Receipt Date: 20070503
  Transmission Date: 20091009
  Serious: Yes (Hospitalization)
  Sender: FDA-Public Use
  Company Number: US-ASTRAZENECA-2006UW21403

PATIENT
  Age: 32 Year
  Sex: Female
  Weight: 84.4 kg

DRUGS (14)
  1. SEROQUEL [Suspect]
     Indication: BIPOLAR DISORDER
     Dosage: 25 - 200 MG
     Route: 048
     Dates: start: 20030101
  2. SEROQUEL [Suspect]
     Indication: DEPRESSION
     Dosage: 25 - 200 MG
     Route: 048
     Dates: start: 20030101
  3. SEROQUEL [Suspect]
     Indication: ANXIETY
     Dosage: 25 - 200 MG
     Route: 048
     Dates: start: 20030101
  4. SEROQUEL [Suspect]
     Dosage: 25-200MG
     Route: 048
     Dates: start: 20040420
  5. SEROQUEL [Suspect]
     Dosage: 25-200MG
     Route: 048
     Dates: start: 20040420
  6. SEROQUEL [Suspect]
     Dosage: 25-200MG
     Route: 048
     Dates: start: 20040420
  7. RISPERDAL [Concomitant]
     Dates: start: 20031209
  8. PROZAC [Concomitant]
     Dates: start: 20030715
  9. KLONOPIN [Concomitant]
     Dates: start: 20031001
  10. CALCITRIOL [Concomitant]
     Dates: start: 20031001
  11. ALBUTEROL [Concomitant]
     Dosage: 2 PUFF BID
     Dates: start: 20031001
  12. SYNTHROID [Concomitant]
     Route: 048
     Dates: start: 20040422
  13. NAPROXEN [Concomitant]
     Route: 048
     Dates: start: 20031001
  14. ADVAIR HFA [Concomitant]

REACTIONS (4)
  - CARDIAC DISORDER [None]
  - PNEUMONIA [None]
  - THYROIDECTOMY [None]
  - TYPE 2 DIABETES MELLITUS [None]
